FAERS Safety Report 4648413-7 (Version None)
Quarter: 2005Q2

REPORT INFORMATION
  Report Type: 
  Country: None (occurrence: None)
  Receive Date: 20050427
  Receipt Date: 20050414
  Transmission Date: 20051028
  Serious: Yes (Hospitalization)
  Sender: FDA-Public Use
  Company Number: HQWYE024414APR05

PATIENT
  Age: 39 Year
  Sex: Male

DRUGS (5)
  1. CORDARONE [Suspect]
     Dosage: 200 MG 1X PER 1 DAY; ORAL
     Route: 048
     Dates: start: 20020604
  2. CARVEDILOL (CARVEDIOL, ) [Suspect]
     Dosage: 3.25 MG 1X PER 1 DAY, ORAL
     Route: 048
     Dates: start: 20020607, end: 20020614
  3. DIGOXIN [Suspect]
     Dosage: 125 UG 1X PER 1 DAY, ORAL
     Route: 048
     Dates: start: 20040522, end: 20020614
  4. SPIRONOLACTONE [Suspect]
     Dosage: 12.5 MG 1X PER 1 DAY, ORAL
     Route: 048
     Dates: start: 20020521
  5. LOSARTAN (LOSARTAN) [Concomitant]

REACTIONS (2)
  - DRUG INTERACTION [None]
  - THROMBOCYTOPENIA [None]
